FAERS Safety Report 8064384-8 (Version None)
Quarter: 2012Q1

REPORT INFORMATION
  Report Type: 
  Country: None (occurrence: None)
  Receive Date: 20120123
  Receipt Date: 20120112
  Transmission Date: 20120608
  Serious: Yes (Life-Threatening, Other)
  Sender: FDA-Public Use
  Company Number: US-BAXTER-2011BH039673

PATIENT
  Age: 62 Year
  Sex: Female
  Weight: 71 kg

DRUGS (12)
  1. GAMMAGARD LIQUID [Suspect]
     Indication: IMMUNODEFICIENCY
     Route: 042
     Dates: start: 20110912
  2. GAMMAGARD LIQUID [Suspect]
     Route: 042
     Dates: start: 20110912
  3. GAMMAGARD LIQUID [Suspect]
     Route: 042
     Dates: start: 20111216, end: 20111216
  4. VITAMIN D [Concomitant]
     Indication: PRODUCT USED FOR UNKNOWN INDICATION
     Route: 048
  5. GAMMAGARD LIQUID [Suspect]
     Route: 042
     Dates: start: 20110912
  6. GAMMAGARD LIQUID [Suspect]
     Route: 042
     Dates: start: 20110912
  7. ANTIHYPERTENSIVES [Concomitant]
     Indication: HYPERTENSION
     Route: 065
  8. GAMMAGARD LIQUID [Suspect]
     Route: 065
     Dates: start: 20120112, end: 20120112
  9. LOVASTATIN [Concomitant]
     Indication: PRODUCT USED FOR UNKNOWN INDICATION
     Route: 048
  10. LISINOPRIL [Concomitant]
     Indication: PRODUCT USED FOR UNKNOWN INDICATION
     Route: 048
  11. FLUTICASONE PROPIONATE [Concomitant]
     Indication: PRODUCT USED FOR UNKNOWN INDICATION
     Route: 045
  12. FAMOTIDINE [Concomitant]
     Indication: PRODUCT USED FOR UNKNOWN INDICATION
     Route: 048

REACTIONS (5)
  - DYSPNOEA [None]
  - PHARYNGEAL OEDEMA [None]
  - FLUSHING [None]
  - MALAISE [None]
  - BLOOD PRESSURE DECREASED [None]
